FAERS Safety Report 6079335-5 (Version None)
Quarter: 2009Q1

REPORT INFORMATION
  Report Type: 
  Country: None (occurrence: None)
  Receive Date: 20090216
  Receipt Date: 20090205
  Transmission Date: 20090719
  Serious: Yes (Hospitalization, Other)
  Sender: FDA-Public Use
  Company Number: PHBS2009TW00768

PATIENT
  Age: 37 Year
  Sex: Male

DRUGS (6)
  1. CLOZARIL [Suspect]
     Indication: SCHIZOPHRENIA
     Dosage: 100 MG/D
     Dates: start: 20051010, end: 20060704
  2. CLOZARIL [Suspect]
     Dosage: UP TO 225 MG/D / TAPERED FROM 225 TO 25 MG/DAY
     Dates: start: 20060705, end: 20061017
  3. ABILIFY [Concomitant]
     Dosage: UNK
     Route: 048
     Dates: start: 20060705, end: 20061017
  4. ABILIFY [Concomitant]
     Dosage: UNK
     Dates: start: 20061017, end: 20061212
  5. ABILIFY [Concomitant]
     Dosage: UNK
     Dates: start: 20061212, end: 20071201
  6. SEROQUEL [Concomitant]
     Dosage: UNK
     Dates: start: 20061017, end: 20061212

REACTIONS (10)
  - ALCOHOL ABUSE [None]
  - CONDITION AGGRAVATED [None]
  - DELUSION [None]
  - DEPRESSED MOOD [None]
  - DISTURBANCE IN ATTENTION [None]
  - PARANOIA [None]
  - QUALITY OF LIFE DECREASED [None]
  - SALIVARY HYPERSECRETION [None]
  - SOMNOLENCE [None]
  - SUICIDAL IDEATION [None]
